FAERS Safety Report 7282205-8 (Version None)
Quarter: 2011Q1

REPORT INFORMATION
  Report Type: 
  Country: None (occurrence: None)
  Receive Date: 20110209
  Receipt Date: 20110201
  Transmission Date: 20110831
  Serious: Yes (Hospitalization, Other)
  Sender: FDA-Public Use
  Company Number: US-BIOGENIDEC-2010BI043307

PATIENT
  Sex: Female

DRUGS (5)
  1. FENTANYL [Concomitant]
  2. AVONEX [Suspect]
     Route: 030
     Dates: start: 20070808, end: 20071001
  3. AVONEX [Suspect]
     Route: 030
     Dates: start: 20090109
  4. AVONEX [Suspect]
     Indication: MULTIPLE SCLEROSIS
     Route: 030
     Dates: start: 19990701
  5. Q6 (NOS) [Concomitant]

REACTIONS (13)
  - LUNG NEOPLASM [None]
  - CHEST PAIN [None]
  - HYPOTENSION [None]
  - DISORIENTATION [None]
  - HYPOAESTHESIA [None]
  - THYROID NEOPLASM [None]
  - BLOOD PRESSURE FLUCTUATION [None]
  - HYPERTENSION [None]
  - MULTIPLE SCLEROSIS RELAPSE [None]
  - MUSCLE SPASMS [None]
  - EYE DISORDER [None]
  - GAIT DISTURBANCE [None]
  - CARDIAC DISORDER [None]
